FAERS Safety Report 4984022-8 (Version None)
Quarter: 2006Q1

REPORT INFORMATION
  Report Type: 
  Country: None (occurrence: None)
  Receive Date: 20060301
  Receipt Date: 20051228
  Transmission Date: 20060701
  Serious: Yes (Other)
  Sender: FDA-Public Use
  Company Number: S05-USA-05283-01

PATIENT
  Age: 81 Year
  Sex: Female

DRUGS (8)
  1. NAMENDA [Suspect]
     Indication: AMNESIA
     Dosage: 5 MG QD PO
     Route: 048
     Dates: start: 20051211, end: 20051217
  2. NAMENDA [Suspect]
     Indication: CONFUSIONAL STATE
     Dosage: 5 MG QD PO
     Route: 048
     Dates: start: 20051211, end: 20051217
  3. NAMENDA [Suspect]
     Indication: AMNESIA
     Dosage: 5 MG BID PO
     Route: 048
     Dates: start: 20051218, end: 20051224
  4. NAMENDA [Suspect]
     Indication: CONFUSIONAL STATE
     Dosage: 5 MG BID PO
     Route: 048
     Dates: start: 20051218, end: 20051224
  5. NAMENDA [Suspect]
     Indication: AMNESIA
     Dosage: 15 MG QD PO
     Route: 048
     Dates: start: 20051225, end: 20051228
  6. NAMENDA [Suspect]
     Indication: CONFUSIONAL STATE
     Dosage: 15 MG QD PO
     Route: 048
     Dates: start: 20051225, end: 20051228
  7. ARICEPT [Concomitant]
  8. MULTIPLE MEDICATIONS (NOS) [Concomitant]

REACTIONS (2)
  - CONFUSIONAL STATE [None]
  - LOSS OF CONSCIOUSNESS [None]
